FAERS Safety Report 19490650 (Version 6)
Quarter: 2021Q3

REPORT INFORMATION
  Report Type: Report from Study
  Country: None (occurrence: FI)
  Receive Date: 20210705
  Receipt Date: 20210826
  Transmission Date: 20211014
  Serious: Yes (Life-Threatening, Hospitalization, Other)
  Sender: FDA-Public Use
  Company Number: FI-ABBVIE-21K-055-3970965-00

PATIENT
  Age: 68 Year
  Sex: Male

DRUGS (2)
  1. DUODOPA [Suspect]
     Active Substance: CARBIDOPA\LEVODOPA
     Route: 050
     Dates: start: 202108
  2. DUODOPA [Suspect]
     Active Substance: CARBIDOPA\LEVODOPA
     Indication: PARKINSON^S DISEASE
     Dosage: 5.1 ML/H
     Route: 050
     Dates: start: 201902, end: 202105

REACTIONS (17)
  - Intestinal ulcer [Unknown]
  - Suture related complication [Unknown]
  - Gastrointestinal tract irritation [Unknown]
  - Wound complication [Recovered/Resolved with Sequelae]
  - Device expulsion [Recovered/Resolved with Sequelae]
  - Bezoar [Recovered/Resolved]
  - Inflammatory marker increased [Recovered/Resolved with Sequelae]
  - Small intestinal perforation [Unknown]
  - Device dislocation [Recovered/Resolved]
  - Gastrointestinal inflammation [Unknown]
  - Ascites [Unknown]
  - Gastrointestinal candidiasis [Recovered/Resolved with Sequelae]
  - Surgical skin tear [Recovered/Resolved with Sequelae]
  - Stoma site discharge [Unknown]
  - Infection [Recovered/Resolved with Sequelae]
  - Abdominal pain [Recovered/Resolved with Sequelae]
  - Pneumoperitoneum [Unknown]

NARRATIVE: CASE EVENT DATE: 2021
